FAERS Safety Report 5313572-X (Version None)
Quarter: 2007Q2

REPORT INFORMATION
  Report Type: 
  Country: None (occurrence: None)
  Receive Date: 20070424
  Receipt Date: 20070413
  Transmission Date: 20071010
  Serious: Yes (Hospitalization)
  Sender: FDA-Public Use
  Company Number: 155238ISR

PATIENT
  Age: 74 Year
  Sex: Male

DRUGS (4)
  1. FLUOROURACIL [Suspect]
     Indication: METASTATIC GASTRIC CANCER
     Dosage: 1500 MG/M2
     Dates: start: 20061112
  2. FOLINIC ACID [Suspect]
     Indication: METASTATIC GASTRIC CANCER
     Dosage: 200 MG/M2
     Dates: start: 20061112
  3. CETUXIMAB [Suspect]
     Indication: METASTATIC GASTRIC CANCER
     Dosage: 250 MG/M2
     Dates: start: 20061112
  4. IRINOTECAN [Suspect]
     Indication: METASTATIC GASTRIC CANCER
     Dosage: 80 MG/M2 INTRAVENOUS
     Route: 042
     Dates: start: 20061112

REACTIONS (3)
  - HEART RATE INCREASED [None]
  - PULMONARY EMBOLISM [None]
  - PYREXIA [None]
